FAERS Safety Report 7859383-2 (Version None)
Quarter: 2011Q4

REPORT INFORMATION
  Report Type: 
  Country: None (occurrence: None)
  Receive Date: 20111026
  Receipt Date: 20111026
  Transmission Date: 20120403
  Serious: Yes (Hospitalization)
  Sender: FDA-Public Use
  Company Number: None

PATIENT
  Sex: Female
  Weight: 73.2 kg

DRUGS (2)
  1. CARBOPLATIN [Suspect]
     Dosage: 602 MG
     Dates: end: 20110825
  2. TAXOL [Suspect]
     Dosage: 288 MG
     Dates: end: 20110901

REACTIONS (4)
  - THROMBOPHLEBITIS SUPERFICIAL [None]
  - DEEP VEIN THROMBOSIS [None]
  - ANAEMIA [None]
  - INTERNATIONAL NORMALISED RATIO INCREASED [None]
